FAERS Safety Report 8723200 (Version 2)
Quarter: 2013Q4

REPORT INFORMATION
  Report Type: Spontaneous
  Country: US (occurrence: US)
  Receive Date: 20120814
  Receipt Date: 20131101
  Transmission Date: 20140711
  Serious: No
  Sender: FDA-Public Use
  Company Number: US-009507513-1208USA002625

PATIENT
  Age: 75 Year
  Sex: Male

DRUGS (2)
  1. MIRALAX [Suspect]
     Indication: CONSTIPATION
     Dosage: 17 G, QD
     Route: 048
     Dates: start: 20120613
  2. MIRALAX [Suspect]
     Dosage: 17 G, BID
     Route: 048
     Dates: start: 20120615

REACTIONS (2)
  - Overdose [Unknown]
  - Drug ineffective [Unknown]
